FAERS Safety Report 5987464-7 (Version None)
Quarter: 2008Q4

REPORT INFORMATION
  Report Type: 
  Country: None (occurrence: None)
  Receive Date: 20081128
  Receipt Date: 20080304
  Transmission Date: 20090506
  Serious: Yes (Other)
  Sender: FDA-Public Use
  Company Number: 310017J08USA

PATIENT
  Age: 39 Year
  Sex: Female
  Weight: 63.5036 kg

DRUGS (8)
  1. GONAL-F [Suspect]
     Indication: INFERTILITY
     Dosage: 1350 IU, SUBCUTANEOUS : 1350 IU, SUBCUTANEOUS : SUBCUTANEOUS : SUBCUTANEOUS
     Route: 058
     Dates: start: 20070901
  2. GONAL-F [Suspect]
     Indication: INFERTILITY
     Dosage: 1350 IU, SUBCUTANEOUS : 1350 IU, SUBCUTANEOUS : SUBCUTANEOUS : SUBCUTANEOUS
     Route: 058
     Dates: start: 20071001
  3. GONAL-F [Suspect]
     Indication: INFERTILITY
     Dosage: 1350 IU, SUBCUTANEOUS : 1350 IU, SUBCUTANEOUS : SUBCUTANEOUS : SUBCUTANEOUS
     Route: 058
     Dates: start: 20080201
  4. GONAL-F [Suspect]
     Indication: INFERTILITY
     Dosage: 1350 IU, SUBCUTANEOUS : 1350 IU, SUBCUTANEOUS : SUBCUTANEOUS : SUBCUTANEOUS
     Route: 058
     Dates: start: 20080301
  5. CLOMID [Suspect]
     Indication: INFERTILITY
     Dates: start: 20070901
  6. CLOMID [Suspect]
     Indication: INFERTILITY
     Dates: start: 20071001
  7. CLOMID [Suspect]
     Indication: INFERTILITY
     Dates: start: 20080201
  8. CLOMID [Suspect]
     Indication: INFERTILITY
     Dates: start: 20080301

REACTIONS (1)
  - ABORTION SPONTANEOUS [None]
